FAERS Safety Report 14031694 (Version 1)
Quarter: 2017Q4

REPORT INFORMATION
  Report Type: Spontaneous
  Country: JP (occurrence: JP)
  Receive Date: 20171002
  Receipt Date: 20171002
  Transmission Date: 20180321
  Serious: Yes (Death, Other)
  Sender: FDA-Public Use
  Company Number: JP-SHIRE-JP201718162

PATIENT

DRUGS (1)
  1. FOSRENOL [Suspect]
     Active Substance: LANTHANUM CARBONATE
     Indication: PRODUCT USED FOR UNKNOWN INDICATION
     Dosage: UNK, DURATION 5 MONTHS
     Route: 048

REACTIONS (4)
  - Medication residue present [Unknown]
  - Gastrointestinal necrosis [Unknown]
  - Faecaloma [Unknown]
  - Large intestine perforation [Fatal]
